FAERS Safety Report 7128744-1 (Version None)
Quarter: 2010Q4

REPORT INFORMATION
  Report Type: 
  Country: None (occurrence: None)
  Receive Date: 20101130
  Receipt Date: 20101119
  Transmission Date: 20110411
  Serious: Yes (Other)
  Sender: FDA-Public Use
  Company Number: BR-JNJFOC-20101107357

PATIENT
  Age: 34 Year
  Sex: Female
  Weight: 27.22 kg

DRUGS (2)
  1. ORTHO EVRA [Suspect]
     Indication: CONTRACEPTION
     Dosage: EACH CYCLE CONSISTS OF 1 PATCH A WEEK, DURING 3 WEEKS, FOLLOWED BY 1 PATCH FREE WEEK
     Route: 062
  2. TUBERCULOSIS MEDICATIONS [Interacting]
     Indication: TUBERCULOSIS
     Route: 065

REACTIONS (4)
  - ABORTION SPONTANEOUS [None]
  - DRUG EXPOSURE DURING PREGNANCY [None]
  - DRUG INTERACTION [None]
  - PREGNANCY WITH CONTRACEPTIVE PATCH [None]
